FAERS Safety Report 5956591-2 (Version None)
Quarter: 2008Q4

REPORT INFORMATION
  Report Type: 
  Country: None (occurrence: None)
  Receive Date: 20081118
  Receipt Date: 20081113
  Transmission Date: 20090506
  Serious: Yes (Other)
  Sender: FDA-Public Use
  Company Number: GB-WYE-G02572008

PATIENT
  Sex: Male

DRUGS (5)
  1. RAPAMUNE [Suspect]
     Indication: RENAL DISORDER
     Dosage: 1MG DAILY
     Dates: start: 20061001
  2. ATENOLOL [Concomitant]
     Dosage: 50MG, FREQUENCY UNKNOWN
  3. LOSARTAN POTASSIUM [Concomitant]
     Dosage: 100MG, FREQUENCY UNKNOWN
  4. DOXYCYCLINE [Suspect]
     Indication: ACNE
     Dosage: UNKNOWN
  5. AZATHIOPRINE [Concomitant]
     Dosage: 50MG, FREQUENCY UNKNOWN

REACTIONS (4)
  - ACNE [None]
  - BLOOD CREATINE PHOSPHOKINASE INCREASED [None]
  - MUSCULAR WEAKNESS [None]
  - MYALGIA [None]
